FAERS Safety Report 12251519 (Version 1)
Quarter: 2016Q2

REPORT INFORMATION
  Report Type: Spontaneous
  Country: US (occurrence: US)
  Receive Date: 20160410
  Receipt Date: 20160410
  Transmission Date: 20160815
  Serious: No
  Sender: FDA-Public Use
  Company Number: US-JNJFOC-20160221550

PATIENT
  Sex: Female

DRUGS (1)
  1. INVEGA SUSTENNA [Suspect]
     Active Substance: PALIPERIDONE PALMITATE
     Indication: PRODUCT USED FOR UNKNOWN INDICATION
     Route: 030

REACTIONS (8)
  - Palpitations [Unknown]
  - Feeling abnormal [Unknown]
  - Feeling hot [Unknown]
  - Confusional state [Unknown]
  - Dizziness [Unknown]
  - Hyperhidrosis [Unknown]
  - Overdose [Unknown]
  - Tremor [Unknown]
